FAERS Safety Report 16567279 (Version 2)
Quarter: 2019Q3

REPORT INFORMATION
  Report Type: Report from Study
  Country: US (occurrence: US)
  Receive Date: 20190712
  Receipt Date: 20190918
  Transmission Date: 20191004
  Serious: Yes (Hospitalization)
  Sender: FDA-Public Use
  Company Number: US-TAKEDA-2019TUS042826

PATIENT
  Sex: Male

DRUGS (1)
  1. PONATINIB [Suspect]
     Active Substance: PONATINIB
     Indication: ACUTE LYMPHOCYTIC LEUKAEMIA
     Dosage: 15 MILLIGRAM, QD
     Route: 048
     Dates: start: 20190503

REACTIONS (5)
  - White blood cell count abnormal [Unknown]
  - Dyslipidaemia [Unknown]
  - Haemoglobin abnormal [Unknown]
  - Dry eye [Unknown]
  - Platelet disorder [Unknown]
